FAERS Safety Report 18865238 (Version 1)
Quarter: 2021Q1

REPORT INFORMATION
  Report Type: Report from Study
  Country: None (occurrence: TN)
  Receive Date: 20210208
  Receipt Date: 20210208
  Transmission Date: 20210420
  Serious: Yes (Hospitalization)
  Sender: FDA-Public Use
  Company Number: TN-ABBVIE-21K-160-3764649-00

PATIENT
  Age: 28 Year
  Sex: Male

DRUGS (6)
  1. IBSIUM [Concomitant]
     Indication: GASTRIC DISORDER
     Dosage: 1 TAB EVERY DAY WHEN NEEDED
     Route: 048
  2. HUMIRA [Suspect]
     Active Substance: ADALIMUMAB
     Indication: CROHN^S DISEASE
     Route: 058
     Dates: start: 2015
  3. HUMIRA [Suspect]
     Active Substance: ADALIMUMAB
     Route: 058
     Dates: start: 20190421, end: 202001
  4. HUMIRA [Suspect]
     Active Substance: ADALIMUMAB
     Dosage: 160MG LOADING DOSE
     Route: 058
     Dates: start: 20190407, end: 20190407
  5. HUMIRA [Suspect]
     Active Substance: ADALIMUMAB
     Route: 058
     Dates: start: 20200202
  6. IMUREL [Concomitant]
     Active Substance: AZATHIOPRINE SODIUM
     Indication: CROHN^S DISEASE
     Route: 048
     Dates: end: 202009

REACTIONS (1)
  - Anal fistula [Recovering/Resolving]

NARRATIVE: CASE EVENT DATE: 202101
